FAERS Safety Report 15197549 (Version 1)
Quarter: 2018Q3

REPORT INFORMATION
  Report Type: Spontaneous
  Country: US (occurrence: US)
  Receive Date: 20180725
  Receipt Date: 20180725
  Transmission Date: 20181010
  Serious: No
  Sender: FDA-Public Use
  Company Number: US-ABBVIE-18P-163-2392263-00

PATIENT
  Sex: Female

DRUGS (2)
  1. SYNTHROID [Suspect]
     Active Substance: LEVOTHYROXINE SODIUM
     Dosage: TAKE ONE  137 MCG TABLET EVERY OTHER DAY ALTERNATING WITH 125MCG TABLET EVERY OTHER DAY
     Route: 048
  2. SYNTHROID [Suspect]
     Active Substance: LEVOTHYROXINE SODIUM
     Indication: HYPOTHYROIDISM
     Dosage: TAKE 125MG EVERY OTHER DAY ALTERNATING WITH  137 MCG EVERY OTHER DAY.
     Route: 048

REACTIONS (4)
  - Blood thyroid stimulating hormone abnormal [Unknown]
  - Thyroxine abnormal [Unknown]
  - Blood pressure increased [Unknown]
  - Tri-iodothyronine abnormal [Unknown]
